FAERS Safety Report 5305931-6 (Version None)
Quarter: 2007Q2

REPORT INFORMATION
  Report Type: 
  Country: None (occurrence: None)
  Receive Date: 20070424
  Receipt Date: 20070419
  Transmission Date: 20071010
  Serious: Yes (Other)
  Sender: FDA-Public Use
  Company Number: AU-GLAXOSMITHKLINE-B0467675A

PATIENT
  Sex: Male

DRUGS (2)
  1. TIMENTIN [Suspect]
     Indication: DRUG USE FOR UNKNOWN INDICATION
     Dates: start: 20070301
  2. VANCOMYCIN [Concomitant]

REACTIONS (1)
  - PANCYTOPENIA [None]
